FAERS Safety Report 16158228 (Version 1)
Quarter: 2019Q2

REPORT INFORMATION
  Report Type: Spontaneous
  Country: US (occurrence: US)
  Receive Date: 20190301
  Receipt Date: 20190301
  Transmission Date: 20190711
  Serious: No
  Sender: FDA-Public Use
  Company Number: None

PATIENT
  Age: 46 Year
  Sex: Female

DRUGS (3)
  1. XOLAIR [Suspect]
     Active Substance: OMALIZUMAB
  2. 3ML LL SYRNG MIS 18GX 1.5 [Concomitant]
  3. NUCALA [Suspect]
     Active Substance: MEPOLIZUMAB
     Dates: start: 20160816

REACTIONS (1)
  - Eosinophilia [None]

NARRATIVE: CASE EVENT DATE: 20190301
